FAERS Safety Report 6647728-0 (Version None)
Quarter: 2010Q1

REPORT INFORMATION
  Report Type: 
  Country: None (occurrence: None)
  Receive Date: 20100323
  Receipt Date: 20100323
  Transmission Date: 20100710
  Serious: Yes (Disabling)
  Sender: FDA-Public Use
  Company Number: None

PATIENT
  Age: 60 Year
  Sex: Female
  Weight: 43.0917 kg

DRUGS (1)
  1. DILANTIN [Suspect]
     Dosage: 100MG 30MG 130 AM 160 PM ORAL
     Route: 048

REACTIONS (3)
  - AGEUSIA [None]
  - DECREASED APPETITE [None]
  - HYPOSMIA [None]
